FAERS Safety Report 5325379-8 (Version None)
Quarter: 2007Q2

REPORT INFORMATION
  Report Type: 
  Country: None (occurrence: None)
  Receive Date: 20070509
  Receipt Date: 20070423
  Transmission Date: 20071010
  Serious: Yes (Hospitalization)
  Sender: FDA-Public Use
  Company Number: 2007RR-07176

PATIENT
  Age: 26 Year
  Sex: Male

DRUGS (4)
  1. CODEINE PHOSPHATE (CODEINE) [Suspect]
  2. ACETAMINOPHEN [Suspect]
     Dosage: 17.5 G, ORAL
     Route: 048
  3. BENZODIAZEPINE [Concomitant]
  4. ECSTASY [Concomitant]

REACTIONS (4)
  - COAGULOPATHY [None]
  - HEPATIC FUNCTION ABNORMAL [None]
  - LIVER DISORDER [None]
  - OVERDOSE [None]
